FAERS Safety Report 8798794 (Version 3)
Quarter: 2012Q4

REPORT INFORMATION
  Report Type: 
  Country: US (occurrence: US)
  Receive Date: 20120920
  Receipt Date: 20121207
  Transmission Date: 20130627
  Serious: Yes (Hospitalization, Other)
  Sender: FDA-Public Use
  Company Number: US-009507513-1202USA00878

PATIENT

DRUGS (10)
  1. FOSAMAX [Suspect]
     Indication: OSTEOPOROSIS
     Dosage: 10 mg, UNK
     Route: 048
     Dates: start: 199510, end: 200110
  2. FOSAMAX [Suspect]
     Indication: OSTEOPENIA
     Dosage: 70 mg, qw
     Route: 048
     Dates: start: 200110, end: 200802
  3. FOSAMAX [Suspect]
     Indication: OSTEOPOROSIS
     Dosage: 70 mg, qw
     Route: 048
     Dates: start: 200802, end: 20080624
  4. FOSAMAX [Suspect]
     Indication: OSTEOPENIA
  5. LITHIUM [Concomitant]
     Indication: BIPOLAR I DISORDER
     Dosage: UNK
     Dates: start: 1983
  6. ALPRAZOLAM [Concomitant]
     Indication: INSOMNIA
     Dosage: UNK
     Dates: start: 1983
  7. CALCIUM (UNSPECIFIED) [Concomitant]
     Indication: OSTEOPOROSIS
     Dosage: 315 mg, UNK
     Dates: start: 1995
  8. CALCIUM (UNSPECIFIED) [Concomitant]
     Indication: OSTEOPENIA
  9. VITAMIN D (UNSPECIFIED) [Concomitant]
     Indication: OSTEOPOROSIS
  10. VITAMIN D (UNSPECIFIED) [Concomitant]
     Indication: OSTEOPENIA

REACTIONS (27)
  - Femur fracture [Unknown]
  - Intramedullary rod insertion [Unknown]
  - Femur fracture [Recovering/Resolving]
  - Bursitis [Unknown]
  - Wisdom teeth removal [Unknown]
  - Endodontic procedure [Unknown]
  - Adverse event [Unknown]
  - Depression [Not Recovered/Not Resolved]
  - Anxiety [Not Recovered/Not Resolved]
  - Vasomotor rhinitis [Unknown]
  - Spinal disorder [Unknown]
  - Osteoarthritis [Unknown]
  - Spinal osteoarthritis [Unknown]
  - Hypertrophy [Unknown]
  - Gastritis [Unknown]
  - Abdominal pain [Unknown]
  - Abdominal pain [Unknown]
  - Shoulder operation [Unknown]
  - Chronic sinusitis [Unknown]
  - Sinus operation [Unknown]
  - Abdominal hernia repair [Unknown]
  - Abdominal hernia [Unknown]
  - Fall [Unknown]
  - Hypotension [Recovered/Resolved]
  - Nausea [Recovered/Resolved]
  - Hypertension [Unknown]
  - Rhinitis [Unknown]
